FAERS Safety Report 5899750-X (Version None)
Quarter: 2008Q3

REPORT INFORMATION
  Report Type: 
  Country: None (occurrence: None)
  Receive Date: 20080926
  Receipt Date: 20080915
  Transmission Date: 20090109
  Serious: Yes (Death, Other)
  Sender: FDA-Public Use
  Company Number: GB-BAYER-200826571GPV

PATIENT

DRUGS (9)
  1. CAMPATH [Suspect]
     Indication: ANTI-NEUTROPHIL CYTOPLASMIC ANTIBODY POSITIVE VASCULITIS
     Route: 042
  2. CAMPATH [Suspect]
     Route: 042
  3. PREDNISOLONE [Suspect]
     Indication: ANTI-NEUTROPHIL CYTOPLASMIC ANTIBODY POSITIVE VASCULITIS
     Route: 065
  4. HYDROCORTISONE [Concomitant]
     Indication: DRUG TOXICITY PROPHYLAXIS
     Dosage: TOTAL DAILY DOSE: 100 MG
     Route: 042
  5. CHLORPHENIRAMINE MALEATE [Concomitant]
     Indication: DRUG TOXICITY PROPHYLAXIS
     Dosage: TOTAL DAILY DOSE: 10 MG
     Route: 065
  6. ACYCLOVIR [Concomitant]
     Indication: ANTIVIRAL PROPHYLAXIS
     Route: 065
  7. NYSTATIN [Concomitant]
     Indication: ANTIFUNGAL PROPHYLAXIS
     Route: 065
  8. CYCLOPHOSPHAMIDE [Concomitant]
     Indication: ANTI-NEUTROPHIL CYTOPLASMIC ANTIBODY POSITIVE VASCULITIS
     Route: 048
  9. IMMUNOSUPPRESSIVE AGENTS [Concomitant]
     Indication: ANTI-NEUTROPHIL CYTOPLASMIC ANTIBODY POSITIVE VASCULITIS
     Route: 065

REACTIONS (21)
  - ACTINOMYCOSIS [None]
  - ANGIOPATHY [None]
  - ASPERGILLOSIS [None]
  - BACTERIAL INFECTION [None]
  - BASEDOW'S DISEASE [None]
  - CARDIOVASCULAR DISORDER [None]
  - CEREBROVASCULAR ACCIDENT [None]
  - COLONIC POLYP [None]
  - CYTOMEGALOVIRUS INFECTION [None]
  - DEATH [None]
  - ESCHERICHIA INFECTION [None]
  - GASTROINTESTINAL DYSPLASIA [None]
  - INFECTION [None]
  - LUNG NEOPLASM MALIGNANT [None]
  - LYMPHOMA [None]
  - PITUITARY TUMOUR BENIGN [None]
  - PNEUMOCYSTIS JIROVECI INFECTION [None]
  - PROSTATE CANCER [None]
  - PSEUDOMONAS INFECTION [None]
  - SALMONELLOSIS [None]
  - STAPHYLOCOCCAL INFECTION [None]
